FAERS Safety Report 9280295 (Version 1)
Quarter: 2013Q2

REPORT INFORMATION
  Report Type: Spontaneous
  Country: SG (occurrence: None)
  Receive Date: 20130507
  Receipt Date: 20130507
  Transmission Date: 20140414
  Serious: Yes (Death, Hospitalization)
  Sender: FDA-Public Use
  Company Number: 2013SG001515

PATIENT
  Age: 46 Year
  Sex: Male
  Weight: 60 kg

DRUGS (1)
  1. PONATINIB [Suspect]
     Indication: DRUG RESISTANCE
     Route: 048
     Dates: start: 20120913, end: 20121022

REACTIONS (6)
  - Cerebrovascular accident [None]
  - Cerebral infarction [None]
  - Convulsion [None]
  - Epilepsy [None]
  - Platelet count decreased [None]
  - Cardiac arrest [None]
